FAERS Safety Report 21632061 (Version 2)
Quarter: 2022Q4

REPORT INFORMATION
  Report Type: Spontaneous
  Country: IL (occurrence: IL)
  Receive Date: 20221123
  Receipt Date: 20221128
  Transmission Date: 20230112
  Serious: Yes (Life-Threatening, Hospitalization, Other)
  Sender: FDA-Public Use
  Company Number: IL-002147023-NVSC2022IL262762

PATIENT
  Age: 9 Year
  Sex: Female

DRUGS (1)
  1. ELTROMBOPAG OLAMINE [Suspect]
     Active Substance: ELTROMBOPAG OLAMINE
     Indication: Immune thrombocytopenia
     Dosage: 75 MG, QD (SEVERAL YEARS)
     Route: 065

REACTIONS (11)
  - Headache [Recovering/Resolving]
  - Abdominal pain upper [Recovering/Resolving]
  - Asthenia [Recovering/Resolving]
  - Liver function test increased [Recovering/Resolving]
  - Somnolence [Recovered/Resolved]
  - Encephalitis [Recovering/Resolving]
  - Liver injury [Recovering/Resolving]
  - Ammonia increased [Recovered/Resolved]
  - Prothrombin time prolonged [Recovering/Resolving]
  - Hepatic enzyme increased [Recovered/Resolved]
  - Encephalopathy [Recovered/Resolved]

NARRATIVE: CASE EVENT DATE: 20221115
